FAERS Safety Report 4622623-7 (Version None)
Quarter: 2005Q1

REPORT INFORMATION
  Report Type: 
  Country: None (occurrence: None)
  Receive Date: 20050330
  Receipt Date: 20050121
  Transmission Date: 20050727
  Serious: Yes (Hospitalization)
  Sender: FDA-Public Use
  Company Number: JP-MERCK-0501USA03982

PATIENT
  Age: 78 Year
  Sex: Male

DRUGS (5)
  1. PEPCID [Suspect]
     Indication: GASTROOESOPHAGEAL REFLUX DISEASE
     Route: 048
     Dates: start: 20041213, end: 20050110
  2. MARZULENE-S [Concomitant]
     Route: 048
     Dates: start: 20041213
  3. CLARITHROMYCIN [Concomitant]
     Route: 048
     Dates: start: 20050115, end: 20050125
  4. LASIX [Suspect]
     Indication: RIGHT VENTRICULAR FAILURE
     Route: 048
     Dates: start: 20041213, end: 20050110
  5. HOKUNALIN [Concomitant]
     Route: 061
     Dates: start: 20041213

REACTIONS (8)
  - BLADDER CANCER [None]
  - BLOOD CREATINE PHOSPHOKINASE INCREASED [None]
  - FALL [None]
  - GAIT DISTURBANCE [None]
  - HEAD INJURY [None]
  - MALAISE [None]
  - PNEUMONIA [None]
  - RHABDOMYOLYSIS [None]
